FAERS Safety Report 14874299 (Version 2)
Quarter: 2019Q2

REPORT INFORMATION
  Report Type: Report from Study
  Country: AT (occurrence: AT)
  Receive Date: 20180510
  Receipt Date: 20190617
  Transmission Date: 20190711
  Serious: Yes (Hospitalization)
  Sender: FDA-Public Use
  Company Number: AT-ROCHE-2120665

PATIENT
  Age: 42 Year
  Sex: Female
  Weight: 49 kg

DRUGS (20)
  1. ZOFRAN [Concomitant]
     Active Substance: ONDANSETRON HYDROCHLORIDE
     Route: 065
     Dates: start: 20170926, end: 20180109
  2. ZOFRAN [Concomitant]
     Active Substance: ONDANSETRON HYDROCHLORIDE
     Dosage: ONGOING = CHECKED
     Route: 065
     Dates: start: 20170926, end: 20180112
  3. FORTECORTIN [DEXAMETHASONE] [Concomitant]
     Active Substance: DEXAMETHASONE
     Route: 065
     Dates: start: 20170929, end: 20180110
  4. GLANDOMED [Concomitant]
     Route: 065
     Dates: start: 20170926, end: 20180315
  5. DUROTIV [Concomitant]
     Active Substance: ESOMEPRAZOLE
     Route: 065
     Dates: start: 20170925, end: 20180415
  6. LONQUEX [Concomitant]
     Active Substance: LIPEGFILGRASTIM
     Route: 065
     Dates: start: 20170926, end: 20180112
  7. SPIRULINA [SPIRULINA SPP.] [Concomitant]
     Route: 065
     Dates: start: 20170615
  8. MYCOSTATIN [Concomitant]
     Active Substance: NYSTATIN
     Dosage: ONGOING = NOT CHECKED
     Route: 065
     Dates: start: 20180123, end: 20180215
  9. DIBONDRIN [Concomitant]
     Active Substance: DIPHENHYDRAMINE HYDROCHLORIDE
     Route: 065
     Dates: start: 20170926, end: 20180109
  10. DOCETAXEL. [Suspect]
     Active Substance: DOCETAXEL
     Indication: BREAST CANCER
     Route: 042
     Dates: start: 20170926, end: 20180109
  11. EMEND [Concomitant]
     Active Substance: APREPITANT
     Route: 065
     Dates: start: 20171017, end: 20180111
  12. NORMOLYT [Concomitant]
     Indication: DIARRHOEA HAEMORRHAGIC
     Dosage: ONGOING = NOT CHECKED
     Route: 065
     Dates: start: 20180115, end: 20180215
  13. XANOR [Concomitant]
     Active Substance: ALPRAZOLAM
     Route: 065
     Dates: start: 20170926, end: 20180415
  14. PERTUZUMAB. [Suspect]
     Active Substance: PERTUZUMAB
     Indication: BREAST CANCER
     Dosage: MOST RECENT DOSE PRIOR TO THE EVENT: 17/OCT/2017
     Route: 042
     Dates: start: 20170926, end: 20170926
  15. TRASTUZUMAB. [Suspect]
     Active Substance: TRASTUZUMAB
     Indication: BREAST CANCER
     Dosage: MOST RECENT DOSE PRIOR TO THE EVENT: 17/OCT/2017
     Route: 042
     Dates: start: 20170926, end: 20170926
  16. EMEND [Concomitant]
     Active Substance: APREPITANT
     Route: 065
     Dates: start: 20170126, end: 20180109
  17. NOVALGIN (METAMIZOLE SODIUM) [Concomitant]
     Active Substance: METAMIZOLE SODIUM
     Route: 065
     Dates: start: 20180415
  18. ENTEROBENE [Concomitant]
     Indication: DIARRHOEA HAEMORRHAGIC
     Dosage: ONGOING = NOT CHECKED
     Route: 065
     Dates: start: 20180121
  19. FORTECORTIN [DEXAMETHASONE] [Concomitant]
     Active Substance: DEXAMETHASONE
     Dosage: ONGOING = CHECKED
     Route: 065
     Dates: start: 20170926, end: 20180109
  20. LOVENOX [Concomitant]
     Active Substance: ENOXAPARIN SODIUM
     Route: 065
     Dates: start: 20171125, end: 20180627

REACTIONS (1)
  - Infection [Recovered/Resolved]

NARRATIVE: CASE EVENT DATE: 20180121
